FAERS Safety Report 5890753-8 (Version None)
Quarter: 2008Q3

REPORT INFORMATION
  Report Type: 
  Country: None (occurrence: None)
  Receive Date: 20080922
  Receipt Date: 20080915
  Transmission Date: 20090109
  Serious: Yes (Hospitalization, Other)
  Sender: FDA-Public Use
  Company Number: US-BAYER-200833674NA

PATIENT
  Age: 29 Year
  Sex: Female

DRUGS (3)
  1. MIRENA [Suspect]
     Indication: CONTRACEPTION
     Route: 015
     Dates: start: 20080903, end: 20080909
  2. PERCOCET [Concomitant]
     Indication: PAIN
     Route: 048
  3. NAPROXEN [Concomitant]
     Indication: INFLAMMATION
     Route: 048

REACTIONS (4)
  - ABDOMINAL PAIN LOWER [None]
  - COMPLICATION OF DEVICE INSERTION [None]
  - IUD MIGRATION [None]
  - PROCEDURAL PAIN [None]
